FAERS Safety Report 20008342 (Version 1)
Quarter: 2021Q4

REPORT INFORMATION
  Report Type: Spontaneous
  Country: US (occurrence: US)
  Receive Date: 20211029
  Receipt Date: 20211029
  Transmission Date: 20220303
  Serious: No
  Sender: FDA-Public Use
  Company Number: US-ULTRAGENYX PHARMACEUTICAL INC.-US-UGNX-21-00292

PATIENT
  Sex: Male
  Weight: 25.8 kg

DRUGS (3)
  1. DOJOLVI [Suspect]
     Active Substance: TRIHEPTANOIN
     Indication: Very long-chain acyl-coenzyme A dehydrogenase deficiency
     Dosage: CCA 18% KCAL
     Route: 048
     Dates: start: 202011
  2. MELATONIN [Concomitant]
     Active Substance: MELATONIN
     Indication: Product used for unknown indication
  3. CHILDREN^S CHEWABLE MULTIVITAMIN [Concomitant]
     Indication: Product used for unknown indication

REACTIONS (1)
  - Decreased appetite [Unknown]
